FAERS Safety Report 24594666 (Version 2)
Quarter: 2024Q4

REPORT INFORMATION
  Report Type: Spontaneous
  Country: IL (occurrence: IL)
  Receive Date: 20241108
  Receipt Date: 20241205
  Transmission Date: 20250115
  Serious: Yes (Life-Threatening, Hospitalization, Other)
  Sender: NOVO NORDISK
  Company Number: IL-NOVOPROD-1309102

PATIENT
  Age: 61 Year
  Sex: Female
  Weight: 67 kg

DRUGS (25)
  1. NOVORAPID [Suspect]
     Active Substance: INSULIN ASPART
     Dosage: 10 IU
     Route: 058
     Dates: start: 2019
  2. NOVORAPID [Suspect]
     Active Substance: INSULIN ASPART
     Indication: Type 2 diabetes mellitus
     Dosage: UNK
     Route: 058
  3. NOVORAPID [Suspect]
     Active Substance: INSULIN ASPART
     Dosage: 5-8 UNITS
     Route: 058
     Dates: start: 2021
  4. NOVORAPID [Suspect]
     Active Substance: INSULIN ASPART
     Dosage: 8 IU, TID
     Route: 058
     Dates: start: 2019
  5. TOUJEO [Concomitant]
     Active Substance: INSULIN GLARGINE
     Dosage: 30 IU, BID(MORNING AND BEFORE MEALS)
  6. TOUJEO [Concomitant]
     Active Substance: INSULIN GLARGINE
     Indication: Type 2 diabetes mellitus
     Dosage: 40 IU, QD
  7. INSULIN LISPRO [Concomitant]
     Active Substance: INSULIN LISPRO
     Dosage: 5-10 UNITS BEFORE THE MEAL
  8. GLUCOPHAGE [Concomitant]
     Active Substance: METFORMIN HYDROCHLORIDE
     Dosage: UNK
     Dates: start: 20020305
  9. ORTHO CYCLEN [Concomitant]
     Active Substance: ETHINYL ESTRADIOL\NORGESTIMATE
     Indication: Oral contraception
     Dosage: UNK
  10. METFORMIN [Concomitant]
     Active Substance: METFORMIN HYDROCHLORIDE
     Indication: Type 2 diabetes mellitus
     Dosage: UNK
  11. GLYBURIDE [Concomitant]
     Active Substance: GLYBURIDE
     Indication: Type 2 diabetes mellitus
     Dosage: UNK
  12. AVANDIA [Concomitant]
     Active Substance: ROSIGLITAZONE MALEATE
     Indication: Urinary tract inflammation
     Dosage: UNK
  13. AVANDIA [Concomitant]
     Active Substance: ROSIGLITAZONE MALEATE
     Indication: Type 2 diabetes mellitus
  14. INSULIN LISPRO [Concomitant]
     Active Substance: INSULIN LISPRO
     Indication: Type 2 diabetes mellitus
     Dosage: 36 IU, QD
  15. RAMIPRIL [Concomitant]
     Active Substance: RAMIPRIL
     Indication: Hypertension
     Dosage: UNK
  16. EMPAGLIFLOZIN\METFORMIN HYDROCHLORIDE [Concomitant]
     Active Substance: EMPAGLIFLOZIN\METFORMIN HYDROCHLORIDE
     Dosage: UNK
  17. SIMVASTATIN [Concomitant]
     Active Substance: SIMVASTATIN
     Indication: Lipids abnormal
     Dosage: 200 MG
  18. LANTUS [Concomitant]
     Active Substance: INSULIN GLARGINE
     Dosage: 42 IU, QD
  19. BYDUREON [Concomitant]
     Active Substance: EXENATIDE
     Dosage: 2 MG, QW
  20. CRESTOR [Concomitant]
     Active Substance: ROSUVASTATIN CALCIUM
     Indication: Lipids abnormal
     Dosage: 20 MG
  21. TRULICITY [Concomitant]
     Active Substance: DULAGLUTIDE
     Dosage: 1.5 MG
  22. OZEMPIC [Concomitant]
     Active Substance: SEMAGLUTIDE
     Indication: Type 2 diabetes mellitus
     Dosage: UNK
  23. OZEMPIC [Concomitant]
     Active Substance: SEMAGLUTIDE
     Indication: Type 2 diabetes mellitus
     Dosage: UNK
  24. OZEMPIC [Concomitant]
     Active Substance: SEMAGLUTIDE
     Indication: Type 2 diabetes mellitus
     Dosage: UNK
  25. OZEMPIC [Concomitant]
     Active Substance: SEMAGLUTIDE
     Indication: Type 2 diabetes mellitus
     Dosage: UNK

REACTIONS (18)
  - Cerebrovascular accident [Unknown]
  - Neuropathy peripheral [Unknown]
  - Muscle atrophy [Unknown]
  - Diabetic retinopathy [Unknown]
  - Weight increased [Unknown]
  - Blood glucose increased [Unknown]
  - Diabetic nephropathy [Unknown]
  - Lacunar stroke [Unknown]
  - Diabetic foot [Unknown]
  - Product quality issue [Unknown]
  - Headache [Unknown]
  - Decreased appetite [Unknown]
  - Road traffic accident [Unknown]
  - Diabetes mellitus inadequate control [Unknown]
  - Weight decreased [Unknown]
  - Bronchitis [Unknown]
  - Arteriosclerosis [Unknown]
  - Pneumonia [Unknown]

NARRATIVE: CASE EVENT DATE: 20190101
